FAERS Safety Report 8578373-8 (Version None)
Quarter: 2012Q3

REPORT INFORMATION
  Report Type: 
  Country: None (occurrence: None)
  Receive Date: 20120808
  Receipt Date: 20120730
  Transmission Date: 20120928
  Serious: Yes (Hospitalization, Other)
  Sender: FDA-Public Use
  Company Number: US-BAYER-2012-017467

PATIENT
  Age: 17 Year
  Sex: Female
  Weight: 90.703 kg

DRUGS (6)
  1. CELEXA [Concomitant]
     Dosage: 40 MG, UNK
  2. DEPO-PROVERA [Concomitant]
  3. ASPIRIN [Concomitant]
     Indication: PAIN IN EXTREMITY
  4. YAZ [Suspect]
     Indication: CONTRACEPTION
     Dosage: UNK
     Dates: start: 20110307, end: 20110529
  5. LORTAB [Concomitant]
     Dosage: 5 MG, UNK
  6. BUSPAR [Concomitant]
     Dosage: 15 MG, UNK

REACTIONS (9)
  - DEEP VEIN THROMBOSIS [None]
  - LUNG DISORDER [None]
  - EMOTIONAL DISTRESS [None]
  - CHEST PAIN [None]
  - DYSPNOEA [None]
  - PAIN IN EXTREMITY [None]
  - ANXIETY [None]
  - PULMONARY EMBOLISM [None]
  - PULMONARY INFARCTION [None]
